FAERS Safety Report 9115419 (Version 1)
Quarter: 2013Q1

REPORT INFORMATION
  Report Type: Spontaneous
  Country: ES (occurrence: ES)
  Receive Date: 20130225
  Receipt Date: 20130225
  Transmission Date: 20140127
  Serious: Yes (Death, Hospitalization)
  Sender: FDA-Public Use
  Company Number: ES-ABBOTT-13P-144-1053072-00

PATIENT
  Age: 23 None
  Sex: Male

DRUGS (1)
  1. HUMIRA [Suspect]
     Indication: CROHN^S DISEASE
     Route: 058
     Dates: start: 201211, end: 201301

REACTIONS (6)
  - Multi-organ failure [Fatal]
  - Candida sepsis [Fatal]
  - Anorectal disorder [Fatal]
  - Pelvic abscess [Fatal]
  - Crohn^s disease [Fatal]
  - Device related infection [Fatal]
